FAERS Safety Report 9263284 (Version 3)
Quarter: 2013Q4

REPORT INFORMATION
  Report Type: Spontaneous
  Country: US (occurrence: US)
  Receive Date: 20130430
  Receipt Date: 20131202
  Transmission Date: 20140711
  Serious: Yes (Hospitalization, Other)
  Sender: FDA-Public Use
  Company Number: US-009507513-1304USA016934

PATIENT
  Sex: Female
  Weight: 58.96 kg

DRUGS (3)
  1. NUVARING [Suspect]
     Indication: CONTRACEPTION
     Dosage: 1 DF, QM
     Route: 067
     Dates: start: 200406, end: 20050814
  2. NUVARING [Suspect]
     Dosage: 1 DF, QM
     Route: 067
     Dates: start: 20060125, end: 20060911
  3. NUVARING [Suspect]
     Dosage: 1 DF, QM
     Route: 067
     Dates: end: 201106

REACTIONS (48)
  - Atelectasis [Unknown]
  - Pleural effusion [Unknown]
  - Pulmonary embolism [Recovered/Resolved]
  - Pyrexia [Unknown]
  - Hyperhidrosis [Not Recovered/Not Resolved]
  - Asthenia [Unknown]
  - Asthenia [Unknown]
  - Abortion spontaneous [Unknown]
  - Maternal exposure before pregnancy [Unknown]
  - Pyrexia [Unknown]
  - Hypothyroidism [Not Recovered/Not Resolved]
  - Depression [Unknown]
  - Ovarian cyst [Unknown]
  - Drug hypersensitivity [Unknown]
  - Pharyngitis [Unknown]
  - Dizziness [Unknown]
  - Vaginal laceration [Unknown]
  - Anxiety [Not Recovered/Not Resolved]
  - Insomnia [Unknown]
  - Fatigue [Not Recovered/Not Resolved]
  - Headache [Unknown]
  - Memory impairment [Unknown]
  - Hangover [Unknown]
  - Adverse drug reaction [Unknown]
  - Fibromyalgia [Unknown]
  - Mood swings [Unknown]
  - Urine analysis abnormal [Unknown]
  - Headache [Not Recovered/Not Resolved]
  - Mood swings [Unknown]
  - Weight increased [Not Recovered/Not Resolved]
  - Amenorrhoea [Unknown]
  - Muscle spasms [Unknown]
  - Vertigo [Unknown]
  - Chronic fatigue syndrome [Not Recovered/Not Resolved]
  - Chest X-ray abnormal [Unknown]
  - Somnolence [Unknown]
  - Dyslipidaemia [Unknown]
  - Vision blurred [Recovering/Resolving]
  - Nausea [Unknown]
  - Fluid retention [Unknown]
  - Tremor [Unknown]
  - Pulmonary mass [Unknown]
  - Sinusitis [Unknown]
  - Vitamin B12 deficiency [Unknown]
  - Narcolepsy [Unknown]
  - Oedema [Unknown]
  - Paraesthesia [Unknown]
  - Menstruation irregular [Unknown]
